FAERS Safety Report 7487662-X (Version None)
Quarter: 2011Q2

REPORT INFORMATION
  Report Type: 
  Country: None (occurrence: None)
  Receive Date: 20110518
  Receipt Date: 20100116
  Transmission Date: 20111010
  Serious: Yes (Death, Hospitalization, Other)
  Sender: FDA-Public Use
  Company Number: US-BAYER-201011182NA

PATIENT
  Age: 62 Year
  Sex: Female
  Weight: 98 kg

DRUGS (24)
  1. HYDRALAZINE HCL [Concomitant]
     Dosage: 75 MG, (LONG TERM MEDICATION)
  2. VERPAMIL HCL [Concomitant]
     Dosage: 240 MG,  (LONG TERM MEDICATION)
  3. NITRO-DUR [Concomitant]
     Dosage: 0.4 MG PATCH (LONG TERM MEDICATION)
     Route: 061
  4. VISIPAQUE [IODINE,IODIXANOL] [Concomitant]
     Dosage: 90 ML UNK
     Route: 042
     Dates: start: 20070416
  5. ZETIA [Concomitant]
     Dosage: 10 MG, (LONG TERM MEDICATION)
  6. TRASYLOL [Suspect]
     Indication: CORONARY ARTERY BYPASS
     Dosage: UNK
     Dates: start: 20070419
  7. LASIX [Concomitant]
     Indication: FLUID RETENTION
     Dosage: UNK
     Dates: start: 20070101
  8. DIOVAN [Concomitant]
     Dosage: 320 MG,  (LONG TERM MEDICATION)
  9. PLAVIX [Concomitant]
     Dosage: 75 MG, (LONG TERM MEDICATION)
  10. HEPARIN [Concomitant]
     Dosage: UNK
     Dates: start: 20070419
  11. VISIPAQUE [IODINE,IODIXANOL] [Concomitant]
     Dosage: 15 ML UNK
     Route: 042
     Dates: start: 20070201
  12. PROTAMINE SULFATE [Concomitant]
     Dosage: UNK
     Dates: start: 20070419
  13. VISIPAQUE [IODINE,IODIXANOL] [Concomitant]
     Dosage: 100 ML, UNK
     Route: 042
     Dates: start: 20060101
  14. HYDROCHLOROTHIAZIDE [Concomitant]
     Indication: FLUID RETENTION
     Dosage: UNK
     Dates: start: 20070101
  15. ACETYLSALICYLIC ACID SRT [Concomitant]
     Dosage: 81 MG,  (LONG TERM MEDICATION)
  16. ENALAPRIL MALEATE [Concomitant]
     Dosage: 20 MG,(LONG TERM MEDICATION)
  17. AVANDIA [Concomitant]
     Dosage: 2 MG, (LONG TERM MEDICATION)
  18. ZESTRIL [Concomitant]
     Indication: HYPERTENSION
     Dosage: WITHIN 15 YEARS PRIOR TO ALLEGED TRASYLOL INJURY
  19. METOPROLOL SUCCINATE [Concomitant]
     Dosage: 100 MG, (LONG TERM MEDICATION)
  20. LIPITOR [Concomitant]
     Dosage: 20 MG, (LONG TERM MEDICATION)
  21. BENAZEPRIL HYDROCHLORIDE [Concomitant]
     Indication: HYPERTENSION
     Dosage: WITHIN 15 YEARS PRIOR TO ALLEGED TRASYLOL INJURY
  22. LOTENSIN [Concomitant]
     Indication: HYPERTENSION
     Dosage: WITHIN 15 YEARS PRIOR TO ALLEGED TRASYLOL INJURY
  23. LANTUS [Concomitant]
     Dosage: AS DIRECTED (LONG TERM MEDICATION)
  24. CATAPRES [Concomitant]
     Dosage: 0.2 MG, PATCH (LONG TERM MEDICATION)
     Route: 061

REACTIONS (15)
  - DEATH [None]
  - FEAR [None]
  - PAIN [None]
  - ORGAN FAILURE [None]
  - UNEVALUABLE EVENT [None]
  - CEREBROVASCULAR ACCIDENT [None]
  - RENAL IMPAIRMENT [None]
  - CARDIAC DISORDER [None]
  - DEPRESSION [None]
  - ANHEDONIA [None]
  - RENAL INJURY [None]
  - ANXIETY [None]
  - MULTI-ORGAN FAILURE [None]
  - RENAL FAILURE [None]
  - INJURY [None]
